FAERS Safety Report 20202198 (Version 11)
Quarter: 2023Q1

REPORT INFORMATION
  Report Type: Report from Study
  Country: US (occurrence: US)
  Receive Date: 20211217
  Receipt Date: 20230321
  Transmission Date: 20230418
  Serious: Yes (Hospitalization, Other)
  Sender: FDA-Public Use
  Company Number: US-NOVARTISTESTPH-NVSC2021US289109

PATIENT
  Age: 32 Year
  Sex: Female

DRUGS (2)
  1. KESIMPTA [Suspect]
     Active Substance: OFATUMUMAB
     Indication: Multiple sclerosis
     Dosage: 20 MG, QMO
     Route: 058
     Dates: start: 20211006
  2. KESIMPTA [Suspect]
     Active Substance: OFATUMUMAB
     Indication: Relapsing-remitting multiple sclerosis

REACTIONS (17)
  - Meningitis [Recovering/Resolving]
  - Rash [Recovering/Resolving]
  - Illness [Recovering/Resolving]
  - Herpes zoster [Recovering/Resolving]
  - Immune system disorder [Recovering/Resolving]
  - Exercise tolerance decreased [Not Recovered/Not Resolved]
  - Gastric disorder [Not Recovered/Not Resolved]
  - Anxiety [Recovered/Resolved with Sequelae]
  - Amnesia [Not Recovered/Not Resolved]
  - Hypokinesia [Unknown]
  - Feeling abnormal [Unknown]
  - Dyspnoea [Unknown]
  - Ear pain [Recovered/Resolved]
  - Alopecia [Unknown]
  - Band sensation [Not Recovered/Not Resolved]
  - Fatigue [Unknown]
  - COVID-19 [Unknown]

NARRATIVE: CASE EVENT DATE: 20220301
